FAERS Safety Report 13087680 (Version 5)
Quarter: 2017Q2

REPORT INFORMATION
  Report Type: Report from Study
  Country: US (occurrence: US)
  Receive Date: 20170105
  Receipt Date: 20170511
  Transmission Date: 20170830
  Serious: Yes (Death, Life-Threatening, Hospitalization, Other)
  Sender: FDA-Public Use
  Company Number: US-BAYER-2016-245556

PATIENT
  Age: 53 Year
  Sex: Male
  Weight: 99.77 kg

DRUGS (16)
  1. ADEMPAS [Suspect]
     Active Substance: RIOCIGUAT
     Indication: PULMONARY HYPERTENSION
     Dosage: UNK
     Dates: start: 20161226
  2. ADEMPAS [Suspect]
     Active Substance: RIOCIGUAT
     Indication: PULMONARY HYPERTENSION
     Dosage: 1.5 MG, TID
     Route: 048
  3. ADEMPAS [Suspect]
     Active Substance: RIOCIGUAT
     Indication: PULMONARY HYPERTENSION
     Dosage: 2 MG, TID
     Route: 048
  4. PRADAXA [Concomitant]
     Active Substance: DABIGATRAN ETEXILATE MESYLATE
     Indication: PULMONARY HYPERTENSION
  5. OXYGEN. [Concomitant]
     Active Substance: OXYGEN
     Dosage: 4 L, UNK
  6. ADEMPAS [Suspect]
     Active Substance: RIOCIGUAT
     Indication: PULMONARY HYPERTENSION
     Dosage: 1 MG, TID
     Route: 048
     Dates: end: 20170319
  7. REMODULIN [Suspect]
     Active Substance: TREPROSTINIL
     Dosage: UNK
  8. SERTRALINE HYDROCHLORIDE. [Concomitant]
     Active Substance: SERTRALINE HYDROCHLORIDE
     Dosage: 50 MG, QD
     Dates: start: 20160507
  9. ADEMPAS [Suspect]
     Active Substance: RIOCIGUAT
     Indication: PULMONARY HYPERTENSION
     Dosage: 1 MG, TID
     Route: 048
  10. TREPROSTINIL SODIUM [Concomitant]
     Active Substance: TREPROSTINIL SODIUM
     Dosage: 10 MG, Q1HR
     Dates: start: 20161231
  11. ADEMPAS [Suspect]
     Active Substance: RIOCIGUAT
     Indication: PULMONARY HYPERTENSION
     Dosage: 1.5 MG, TID
     Route: 048
  12. TRAMADOL HCL CF [Concomitant]
     Indication: PAIN
     Dosage: 50 MG, QID
     Dates: start: 20170219
  13. PRADAXA [Concomitant]
     Active Substance: DABIGATRAN ETEXILATE MESYLATE
     Indication: DEEP VEIN THROMBOSIS
     Dosage: 150 MG, BID
     Dates: start: 20161031, end: 20161031
  14. ADEMPAS [Suspect]
     Active Substance: RIOCIGUAT
     Indication: PULMONARY HYPERTENSION
     Dosage: UNK
     Dates: start: 20161229
  15. DIAZEPAM. [Concomitant]
     Active Substance: DIAZEPAM
     Dosage: 5 MG, HS
     Dates: start: 20160705
  16. ADEMPAS [Suspect]
     Active Substance: RIOCIGUAT
     Indication: PULMONARY HYPERTENSION
     Dosage: 1.5 MG, UNK

REACTIONS (30)
  - Bradycardia [None]
  - Malaise [Not Recovered/Not Resolved]
  - Malnutrition [None]
  - Depression [None]
  - Atrial flutter [None]
  - Hospitalisation [Unknown]
  - Gastric disorder [None]
  - Encephalopathy [None]
  - Abdominal pain upper [None]
  - Pain in extremity [None]
  - Injection site erythema [None]
  - Haematuria [None]
  - Pulmonary hypertension [Fatal]
  - Hypotension [None]
  - Autonomic dysreflexia [None]
  - Injection site extravasation [Unknown]
  - Nausea [None]
  - Product availability issue [None]
  - Brain hypoxia [None]
  - Pain [Not Recovered/Not Resolved]
  - Abdominal pain upper [None]
  - Muscle spasms [None]
  - Abdominal pain [None]
  - Cold sweat [None]
  - Respiratory distress [None]
  - Hospitalisation [None]
  - Urinary tract infection staphylococcal [None]
  - Wrong technique in product usage process [None]
  - Oedema [None]
  - Chills [None]

NARRATIVE: CASE EVENT DATE: 201612
